FAERS Safety Report 14674507 (Version 1)
Quarter: 2018Q1

REPORT INFORMATION
  Report Type: Spontaneous
  Country: US (occurrence: US)
  Receive Date: 20180323
  Receipt Date: 20180323
  Transmission Date: 20180509
  Serious: Yes (Other)
  Sender: FDA-Public Use
  Company Number: US-JNJFOC-20180327227

PATIENT
  Sex: Male

DRUGS (1)
  1. ELMIRON [Suspect]
     Active Substance: PENTOSAN POLYSULFATE SODIUM
     Indication: MASTOCYTOSIS
     Route: 048
     Dates: start: 201710

REACTIONS (3)
  - Mast cell activation syndrome [Unknown]
  - Product use in unapproved indication [Unknown]
  - Off label use [Unknown]
